FAERS Safety Report 12065053 (Version 1)
Quarter: 2016Q1

REPORT INFORMATION
  Report Type: Spontaneous
  Country: US (occurrence: US)
  Receive Date: 20160210
  Receipt Date: 20160210
  Transmission Date: 20160526
  Serious: No
  Sender: FDA-Public Use
  Company Number: US-ALLERGAN-1513392US

PATIENT
  Sex: Female

DRUGS (2)
  1. JUVEDERM [Concomitant]
     Active Substance: HYALURONIC ACID
  2. BOTOX COSMETIC [Suspect]
     Active Substance: ONABOTULINUMTOXINA
     Indication: PRODUCT USED FOR UNKNOWN INDICATION
     Dosage: UNK UNK, SINGLE
     Route: 030

REACTIONS (3)
  - Fatigue [Unknown]
  - Eyelid ptosis [Unknown]
  - Vision blurred [Unknown]
